FAERS Safety Report 10037711 (Version 1)
Quarter: 2014Q1

REPORT INFORMATION
  Report Type: Spontaneous
  Country: US (occurrence: None)
  Receive Date: 20140324
  Receipt Date: 20140324
  Transmission Date: 20141002
  Serious: Yes (Hospitalization)
  Sender: FDA-Public Use
  Company Number: 2264716

PATIENT
  Age: 38 Year
  Sex: Female

DRUGS (1)
  1. CHLOROPROCAINE HYDROCHLORIDE [Suspect]
     Indication: EPIDURAL ANAESTHESIA
     Dosage: OTHER

REACTIONS (8)
  - Maternal exposure during delivery [None]
  - Hypoaesthesia [None]
  - Apnoea [None]
  - Coma [None]
  - Areflexia [None]
  - Caesarean section [None]
  - Pupil fixed [None]
  - Incorrect route of drug administration [None]
